FAERS Safety Report 4380014-0 (Version None)
Quarter: 2004Q2

REPORT INFORMATION
  Report Type: 
  Country: None (occurrence: None)
  Receive Date: 20040614
  Receipt Date: 20040607
  Transmission Date: 20050107
  Serious: No
  Sender: FDA-Public Use
  Company Number: 04H-078-0263183-00

PATIENT
  Age: 18 Year
  Sex: Male
  Weight: 73 kg

DRUGS (9)
  1. SODIUM CHLORIDE INJECTION (SODIUM CHLORIDE) (SODIUM CHLORIDE) [Suspect]
     Indication: SURGICAL HAEMOSTASIS
  2. GLYCOPYRRONIUM BROMIDE [Concomitant]
  3. DIAZEPAM [Concomitant]
  4. PROPOFOL [Concomitant]
  5. BETHIDINE HYDROCHLORIDE [Concomitant]
  6. PANCURONIUM [Concomitant]
  7. OXYGEN [Concomitant]
  8. SEVOFLURANE [Concomitant]
  9. OXIDISED CELLULOSE [Concomitant]

REACTIONS (3)
  - BRADYCARDIA [None]
  - PROCEDURAL COMPLICATION [None]
  - SINUS ARREST [None]
